FAERS Safety Report 9357631 (Version 5)
Quarter: 2013Q3

REPORT INFORMATION
  Report Type: Report from Study
  Country: US (occurrence: US)
  Receive Date: 20130620
  Receipt Date: 20130930
  Transmission Date: 20140515
  Serious: Yes (Hospitalization, Disabling)
  Sender: FDA-Public Use
  Company Number: US-US-EMD SERONO, INC.-7217328

PATIENT
  Age: 9 Year
  Sex: Female
  Weight: 58 kg

DRUGS (2)
  1. SAIZEN [(SOMATROPIN (RDNA ORIGIN) FOR INJECTION)] [Suspect]
     Indication: PRADER-WILLI SYNDROME
     Route: 058
     Dates: start: 20090427, end: 201302
  2. SAIZEN [(SOMATROPIN (RDNA ORIGIN) FOR INJECTION)] [Suspect]
     Route: 058
     Dates: start: 201302

REACTIONS (3)
  - Kyphosis [Recovered/Resolved]
  - Early menarche [Recovering/Resolving]
  - Scoliosis [Recovered/Resolved]
